FAERS Safety Report 9780185 (Version 2)
Quarter: 2014Q1

REPORT INFORMATION
  Report Type: Report from Study
  Country: US (occurrence: US)
  Receive Date: 20131223
  Receipt Date: 20140131
  Transmission Date: 20141002
  Serious: Yes (Other)
  Sender: FDA-Public Use
  Company Number: PHEH2013US025986

PATIENT
  Sex: Male

DRUGS (5)
  1. EXJADE [Suspect]
     Indication: HAEMOCHROMATOSIS
     Dosage: 1500 MG, QD
     Route: 048
     Dates: start: 201302
  2. EXJADE [Suspect]
     Dosage: 500 MG, QD
     Route: 048
  3. FUROSEMIDE [Concomitant]
     Dosage: UNK UKN, UNK
  4. CALCIUM [Concomitant]
     Dosage: UNK UKN, UNK
  5. MINERAL SUPPLEMENTS [Concomitant]
     Dosage: UNK UKN, UNK

REACTIONS (3)
  - Stress fracture [Unknown]
  - Nuclear magnetic resonance imaging brain abnormal [Unknown]
  - Muscle spasms [Unknown]
